FAERS Safety Report 5146784-9 (Version None)
Quarter: 2006Q4

REPORT INFORMATION
  Report Type: 
  Country: None (occurrence: None)
  Receive Date: 20061107
  Receipt Date: 20061107
  Transmission Date: 20070319
  Serious: Yes (Hospitalization, Other)
  Sender: FDA-Public Use
  Company Number: None

PATIENT
  Age: 72 Year
  Sex: Female
  Weight: 83 kg

DRUGS (10)
  1. PROMETHAZINE [Suspect]
     Indication: NAUSEA
     Dosage: 12.5-25MG EVERY 4-6 HRS PRN IV BOLUS
     Route: 040
     Dates: start: 20060314, end: 20060322
  2. FAMOTIDINE [Concomitant]
  3. CETIRIZINE HCL [Concomitant]
  4. HYDROCODONE BITARTRATE + ACETAMINOPHEN [Concomitant]
  5. CYCLOSPORINE [Concomitant]
  6. PREDNISONE TAB [Concomitant]
  7. SULFAMETHOXAZOLE + TRIMETHOPRIM [Concomitant]
  8. AZATHIAPRINE [Concomitant]
  9. SIMVASTATIN [Concomitant]
  10. HYZAAR [Concomitant]

REACTIONS (8)
  - APHASIA [None]
  - CONFUSIONAL STATE [None]
  - DELIRIUM [None]
  - DYSARTHRIA [None]
  - ENCEPHALOPATHY [None]
  - GLOSSODYNIA [None]
  - HALLUCINATION [None]
  - HEMIPARESIS [None]
